FAERS Safety Report 24423380 (Version 1)
Quarter: 2024Q4

REPORT INFORMATION
  Report Type: Spontaneous
  Country: US (occurrence: None)
  Receive Date: 20241009
  Receipt Date: 20241009
  Transmission Date: 20250114
  Serious: Yes (Hospitalization)
  Sender: Public
  Company Number: None

PATIENT
  Age: 53 Year
  Sex: Male

DRUGS (3)
  1. PACLITAXEL [Suspect]
     Active Substance: PACLITAXEL
  2. ACETAMINOPHEN\HYDROCODONE [Suspect]
     Active Substance: ACETAMINOPHEN\HYDROCODONE
  3. PENICILLIN G [Suspect]
     Active Substance: PENICILLIN G

REACTIONS (3)
  - Anaphylactic reaction [None]
  - Nausea [None]
  - Foaming at mouth [None]

NARRATIVE: CASE EVENT DATE: 20241008
